FAERS Safety Report 9540318 (Version 3)
Quarter: 2013Q4

REPORT INFORMATION
  Report Type: Spontaneous
  Country: JP (occurrence: JP)
  Receive Date: 20130920
  Receipt Date: 20131031
  Transmission Date: 20140711
  Serious: Yes (Hospitalization, Other)
  Sender: FDA-Public Use
  Company Number: JP-TEVA-433659USA

PATIENT
  Age: 74 Year
  Sex: Male

DRUGS (3)
  1. BENDAMUSTINE [Suspect]
     Indication: DIFFUSE LARGE B-CELL LYMPHOMA
     Dosage: 120 MG/M2 DAILY;
     Route: 042
     Dates: start: 20130909, end: 20130909
  2. GRANISETRON HYDROCHLORIDE [Concomitant]
     Dates: start: 20130909, end: 20130909
  3. FLUCONAZOLE [Concomitant]
     Dates: start: 20130902

REACTIONS (3)
  - Hypoxia [Recovered/Resolved]
  - Pneumonia [Unknown]
  - Off label use [Unknown]
